FAERS Safety Report 10244934 (Version 1)
Quarter: 2014Q2

REPORT INFORMATION
  Report Type: Spontaneous
  Country: US (occurrence: US)
  Receive Date: 20140618
  Receipt Date: 20140618
  Transmission Date: 20141212
  Serious: No
  Sender: FDA-Public Use
  Company Number: US-GALDERMA-US14000834

PATIENT
  Age: 66 Year
  Sex: Female

DRUGS (7)
  1. MIRVASO (BRIMONIDINE) TOPICAL GEL, 0.33% [Suspect]
     Indication: ROSACEA
     Dosage: 0.33%
     Route: 061
     Dates: start: 201401
  2. MIRVASO (BRIMONIDINE) TOPICAL GEL, 0.33% [Suspect]
     Dosage: 0.33%
     Route: 061
     Dates: start: 20140210
  3. SYMBICORT [Concomitant]
     Indication: ASTHMA
  4. PROVENTIL [Concomitant]
     Indication: ASTHMA
  5. CLARITIN [Concomitant]
     Route: 048
  6. SINGULAIR [Concomitant]
     Route: 048
  7. ALLERGY SHOT [Concomitant]
     Indication: MULTIPLE ALLERGIES

REACTIONS (2)
  - Skin burning sensation [Recovered/Resolved]
  - Off label use [Recovered/Resolved]
